FAERS Safety Report 7018650-5 (Version None)
Quarter: 2010Q3

REPORT INFORMATION
  Report Type: 
  Country: None (occurrence: None)
  Receive Date: 20100928
  Receipt Date: 20100923
  Transmission Date: 20110219
  Serious: Yes (Hospitalization)
  Sender: FDA-Public Use
  Company Number: DE-MERCK-1009DEU00097

PATIENT
  Age: 84 Year
  Sex: Female

DRUGS (8)
  1. SINGULAIR [Suspect]
     Indication: ASTHMA
     Route: 048
     Dates: start: 19980101, end: 20100801
  2. SINGULAIR [Suspect]
     Route: 048
     Dates: start: 20100101, end: 20100922
  3. THEOPHYLLINE [Concomitant]
     Route: 065
  4. BUDESONIDE AND FORMOTEROL FUMARATE [Concomitant]
     Route: 065
  5. THEOPHYLLINE [Concomitant]
     Route: 065
  6. VALSARTAN [Concomitant]
     Route: 065
  7. DIGITOXIN [Concomitant]
     Route: 065
  8. METOPROLOL TARTRATE [Concomitant]
     Route: 065

REACTIONS (2)
  - HYPERHIDROSIS [None]
  - RESTLESSNESS [None]
